FAERS Safety Report 19311893 (Version 2)
Quarter: 2021Q3

REPORT INFORMATION
  Report Type: Report from Study
  Country: None (occurrence: BR)
  Receive Date: 20210527
  Receipt Date: 20210701
  Transmission Date: 20211014
  Serious: Yes (Disabling, Other)
  Sender: FDA-Public Use
  Company Number: BR-ABBVIE-21K-020-3921830-00

PATIENT
  Age: 40 Year
  Sex: Male
  Weight: 73 kg

DRUGS (1)
  1. HUMIRA [Suspect]
     Active Substance: ADALIMUMAB
     Indication: PSORIASIS
     Route: 058
     Dates: start: 20130406, end: 20210515

REACTIONS (7)
  - Psoriasis [Recovering/Resolving]
  - Sensitive skin [Not Recovered/Not Resolved]
  - Bedridden [Recovering/Resolving]
  - Femur fracture [Recovering/Resolving]
  - Mobility decreased [Recovering/Resolving]
  - Bacterial infection [Recovering/Resolving]
  - Accident [Recovering/Resolving]

NARRATIVE: CASE EVENT DATE: 202105
